FAERS Safety Report 5904747-7 (Version None)
Quarter: 2008Q3

REPORT INFORMATION
  Report Type: 
  Country: None (occurrence: None)
  Receive Date: 20080909
  Receipt Date: 20080403
  Transmission Date: 20090109
  Serious: Yes (Hospitalization)
  Sender: FDA-Public Use
  Company Number: 163-20785-08040922

PATIENT
  Age: 57 Year
  Sex: Male
  Weight: 76.6579 kg

DRUGS (17)
  1. THALOMID [Suspect]
     Indication: MULTIPLE MYELOMA
     Dosage: 200 - 100MG DAILY, ORAL
     Route: 048
     Dates: start: 20041127
  2. DEXAMETHASONE TAB [Suspect]
     Indication: MULTIPLE MYELOMA
     Dosage: 40 MG ; 20 MG
     Dates: end: 20060107
  3. DEXAMETHASONE TAB [Suspect]
     Indication: MULTIPLE MYELOMA
     Dosage: 40 MG ; 20 MG
     Dates: start: 20041127
  4. METOCLOPRAMIDE [Concomitant]
  5. PROTONIX [Concomitant]
  6. FLORINEF [Concomitant]
  7. DIFLUCAN [Concomitant]
  8. LEVOTHROID [Concomitant]
  9. COMBIVENT (COMBIVENT) (INHALANT) [Concomitant]
  10. COLACE (DOCUSATE SODIUM) [Concomitant]
  11. XANAX [Concomitant]
  12. MS CONTIN [Concomitant]
  13. ZOLOFT [Concomitant]
  14. OXYCODONE HCL [Concomitant]
  15. LACTULOSE [Concomitant]
  16. FA (FOLIC ACID) [Concomitant]
  17. FLEXERIL [Concomitant]

REACTIONS (1)
  - PYREXIA [None]
